FAERS Safety Report 25478549 (Version 2)
Quarter: 2025Q3

REPORT INFORMATION
  Report Type: Spontaneous
  Country: TR (occurrence: TR)
  Receive Date: 20250625
  Receipt Date: 20250716
  Transmission Date: 20251020
  Serious: Yes (Other)
  Sender: AMGEN
  Company Number: TR-AMGEN-TURSP2025120732

PATIENT
  Age: 78 Year
  Sex: Female

DRUGS (1)
  1. PROLIA [Suspect]
     Active Substance: DENOSUMAB
     Indication: Osteoporosis
     Route: 065
     Dates: start: 20241121, end: 202506

REACTIONS (6)
  - Fall [Not Recovered/Not Resolved]
  - Gingival recession [Not Recovered/Not Resolved]
  - Oral disorder [Not Recovered/Not Resolved]
  - Speech disorder [Not Recovered/Not Resolved]
  - Dysstasia [Not Recovered/Not Resolved]
  - Head injury [Not Recovered/Not Resolved]
